FAERS Safety Report 24128003 (Version 1)
Quarter: 2024Q3

REPORT INFORMATION
  Report Type: Report from Study
  Country: US (occurrence: US)
  Receive Date: 20240723
  Receipt Date: 20240723
  Transmission Date: 20241017
  Serious: No
  Sender: VANDA PHARMACEUTICALS
  Company Number: US-VANDA PHARMACEUTICALS, INC-2023TASUS007025

PATIENT
  Sex: Female

DRUGS (1)
  1. HETLIOZ LQ [Suspect]
     Active Substance: TASIMELTEON
     Indication: Product used for unknown indication
     Dosage: 4 MG/ML ORAL SUSP (48 ML)
     Route: 048

REACTIONS (2)
  - Product taste abnormal [Unknown]
  - Product dose omission issue [Unknown]
